FAERS Safety Report 5811043-5 (Version None)
Quarter: 2008Q3

REPORT INFORMATION
  Report Type: 
  Country: None (occurrence: None)
  Receive Date: 20080710
  Receipt Date: 20080627
  Transmission Date: 20090109
  Serious: Yes (Other)
  Sender: FDA-Public Use
  Company Number: 19701

PATIENT
  Age: 33 Year
  Sex: Female

DRUGS (2)
  1. CYTARABINE [Suspect]
     Indication: LYMPHOMA
     Dosage: 50 MG IT
  2. DEXAMETHASONE [Concomitant]

REACTIONS (3)
  - HEADACHE [None]
  - INTRACRANIAL PRESSURE INCREASED [None]
  - PAPILLOEDEMA [None]
